FAERS Safety Report 6959607-X (Version None)
Quarter: 2010Q3

REPORT INFORMATION
  Report Type: 
  Country: None (occurrence: None)
  Receive Date: 20100830
  Receipt Date: 20100813
  Transmission Date: 20110219
  Serious: Yes (Disabling, Other)
  Sender: FDA-Public Use
  Company Number: ACO_01341_2010

PATIENT
  Sex: Female

DRUGS (2)
  1. AMPYRA [Suspect]
     Indication: PERONEAL NERVE PALSY
     Dosage: (10 MG BID)
     Dates: start: 20100320, end: 20100420
  2. TYSABRI [Concomitant]

REACTIONS (2)
  - CONDITION AGGRAVATED [None]
  - GAIT DISTURBANCE [None]
